FAERS Safety Report 6385362-0 (Version None)
Quarter: 2009Q4

REPORT INFORMATION
  Report Type: 
  Country: None (occurrence: None)
  Receive Date: 20091002
  Receipt Date: 20080818
  Transmission Date: 20100525
  Serious: No
  Sender: FDA-Public Use
  Company Number: US-ASTRAZENECA-2008UW17003

PATIENT
  Age: 67 Year
  Sex: Female
  Weight: 88.5 kg

DRUGS (5)
  1. ARIMIDEX [Suspect]
     Indication: BREAST CANCER
     Route: 048
     Dates: start: 20071101
  2. PLAVIX [Concomitant]
  3. NEXIUM [Concomitant]
  4. CYMBALTA [Concomitant]
  5. DRUG STUDY FOR CANCER [Concomitant]

REACTIONS (2)
  - COUGH [None]
  - STENT PLACEMENT [None]
